FAERS Safety Report 9070498 (Version 1)
Quarter: 2013Q1

REPORT INFORMATION
  Report Type: Report from Study
  Country: US (occurrence: US)
  Receive Date: 20130129
  Receipt Date: 20130129
  Transmission Date: 20140127
  Serious: Yes (Other)
  Sender: FDA-Public Use
  Company Number: US-ABBOTT-12P-163-0927339-00

PATIENT
  Sex: Female

DRUGS (22)
  1. HUMIRA 40 MG/ 0.8 ML PRE-FILLED SYRINGE [Suspect]
     Indication: PSORIASIS
     Route: 058
     Dates: start: 2009
  2. HUMIRA 40 MG/ 0.8 ML PRE-FILLED SYRINGE [Suspect]
     Indication: ARTHRITIS
  3. COLACE [Concomitant]
     Indication: PRODUCT USED FOR UNKNOWN INDICATION
  4. MANGANESE [Concomitant]
     Indication: PRODUCT USED FOR UNKNOWN INDICATION
  5. MVI [Concomitant]
     Indication: PRODUCT USED FOR UNKNOWN INDICATION
  6. VITAMIN B12 [Concomitant]
     Indication: PRODUCT USED FOR UNKNOWN INDICATION
  7. RA OMEGA 3-6-9 [Concomitant]
     Indication: PRODUCT USED FOR UNKNOWN INDICATION
  8. GLUCOSAMINE [Concomitant]
     Indication: PRODUCT USED FOR UNKNOWN INDICATION
  9. COQ10 [Concomitant]
     Indication: PRODUCT USED FOR UNKNOWN INDICATION
  10. CVS VITAMIN B1 [Concomitant]
     Indication: PRODUCT USED FOR UNKNOWN INDICATION
  11. LISINOPRIL [Concomitant]
     Indication: PRODUCT USED FOR UNKNOWN INDICATION
  12. BL CALCIUM [Concomitant]
     Indication: PRODUCT USED FOR UNKNOWN INDICATION
  13. IRON [Concomitant]
     Indication: PRODUCT USED FOR UNKNOWN INDICATION
  14. FIBERCON [Concomitant]
     Indication: PRODUCT USED FOR UNKNOWN INDICATION
  15. COUMADIN [Concomitant]
     Indication: PRODUCT USED FOR UNKNOWN INDICATION
  16. SYNTHROID [Concomitant]
     Indication: PRODUCT USED FOR UNKNOWN INDICATION
  17. METOPROLOL SUCC ER [Concomitant]
     Indication: PRODUCT USED FOR UNKNOWN INDICATION
  18. CRESTOR [Concomitant]
     Indication: PRODUCT USED FOR UNKNOWN INDICATION
  19. CELEXA [Concomitant]
     Indication: PRODUCT USED FOR UNKNOWN INDICATION
  20. KADIAN [Concomitant]
     Indication: PRODUCT USED FOR UNKNOWN INDICATION
     Dosage: SR
  21. ALLOPURINOL [Concomitant]
     Indication: PRODUCT USED FOR UNKNOWN INDICATION
  22. LASIX [Concomitant]
     Indication: PRODUCT USED FOR UNKNOWN INDICATION

REACTIONS (2)
  - Spinal fracture [Unknown]
  - Injection site pruritus [Unknown]
